FAERS Safety Report 6744529-X (Version None)
Quarter: 2010Q2

REPORT INFORMATION
  Report Type: 
  Country: None (occurrence: None)
  Receive Date: 20100527
  Receipt Date: 20100519
  Transmission Date: 20101027
  Serious: Yes (Other)
  Sender: FDA-Public Use
  Company Number: JP-ABBOTT-10P-087-0637007-00

PATIENT
  Sex: Female

DRUGS (6)
  1. TRICOR [Suspect]
     Indication: HYPERCHOLESTEROLAEMIA
     Route: 048
     Dates: start: 20090629, end: 20090702
  2. TRICOR [Suspect]
     Route: 048
     Dates: start: 20090703, end: 20090822
  3. NIFEDIPINE [Concomitant]
     Indication: DRUG USE FOR UNKNOWN INDICATION
     Dates: start: 20060323
  4. ASPIRIN [Concomitant]
     Indication: DRUG USE FOR UNKNOWN INDICATION
     Dates: start: 20030823
  5. EZETIMIBE [Concomitant]
     Indication: DRUG USE FOR UNKNOWN INDICATION
     Dates: start: 20090401
  6. ROSUVASTATIN CALCIUM [Concomitant]
     Indication: DRUG USE FOR UNKNOWN INDICATION
     Dates: end: 20090628

REACTIONS (4)
  - ABDOMINAL DISCOMFORT [None]
  - DYSPEPSIA [None]
  - HEPATIC FUNCTION ABNORMAL [None]
  - HYPOAESTHESIA [None]
